FAERS Safety Report 6843537-8 (Version None)
Quarter: 2010Q3

REPORT INFORMATION
  Report Type: 
  Country: None (occurrence: None)
  Receive Date: 20100715
  Receipt Date: 20100706
  Transmission Date: 20110219
  Serious: Yes (Hospitalization)
  Sender: FDA-Public Use
  Company Number: IT-ASTRAZENECA-2010SE25929

PATIENT
  Age: 19623 Day
  Sex: Male

DRUGS (6)
  1. SEROQUEL [Suspect]
     Route: 048
     Dates: start: 20100101, end: 20100316
  2. INVEGA [Suspect]
     Route: 048
     Dates: start: 20100101, end: 20100316
  3. DEPAKENE [Suspect]
     Route: 048
     Dates: start: 20100101, end: 20100316
  4. DELORAZEPAM [Concomitant]
     Route: 048
  5. PAROXETINE HCL [Concomitant]
     Route: 048
  6. FELISON [Concomitant]
     Route: 048

REACTIONS (3)
  - BRONCHOPNEUMONIA [None]
  - RENAL FAILURE ACUTE [None]
  - RHABDOMYOLYSIS [None]
